FAERS Safety Report 20692348 (Version 3)
Quarter: 2023Q1

REPORT INFORMATION
  Report Type: Spontaneous
  Country: US (occurrence: US)
  Receive Date: 20220409
  Receipt Date: 20230228
  Transmission Date: 20230417
  Serious: Yes (Other)
  Sender: FDA-Public Use
  Company Number: US-BRISTOL-MYERS SQUIBB COMPANY-2022-013917

PATIENT
  Age: 66 Year
  Sex: Female
  Weight: 59.8 kg

DRUGS (2)
  1. YERVOY [Suspect]
     Active Substance: IPILIMUMAB
     Indication: Pancreatic carcinoma
     Dosage: DRUG STRENGTH:   50MG VIALS X2 SENT DRUG DOSE/ FREQUENCY:   57MG EVERY 6 WEEKS
     Route: 042
     Dates: start: 20210617, end: 20211110
  2. OPDIVO [Suspect]
     Active Substance: NIVOLUMAB
     Indication: Pancreatic carcinoma
     Dates: start: 20210617, end: 20211110

REACTIONS (3)
  - Inflammation [Unknown]
  - Hepatitis [Recovering/Resolving]
  - Off label use [Unknown]

NARRATIVE: CASE EVENT DATE: 20221110
